FAERS Safety Report 20199121 (Version 1)
Quarter: 2021Q4

REPORT INFORMATION
  Report Type: Spontaneous
  Country: US (occurrence: None)
  Receive Date: 20211216
  Receipt Date: 20211216
  Transmission Date: 20220303
  Serious: Yes (Death)
  Sender: FDA-Public Use
  Company Number: None

PATIENT
  Age: 82 Year
  Sex: Male
  Weight: 88.45 kg

DRUGS (1)
  1. BARICITINIB [Suspect]
     Active Substance: BARICITINIB
     Indication: COVID-19 pneumonia
     Dosage: FREQUENCY : DAILY;?
     Route: 048
     Dates: start: 20211130, end: 20211201

REACTIONS (3)
  - Ischaemic stroke [None]
  - Cerebrovascular accident [None]
  - Respiratory failure [None]

NARRATIVE: CASE EVENT DATE: 20211130
